FAERS Safety Report 8777573 (Version 1)
Quarter: 2012Q4

REPORT INFORMATION
  Report Type: 
  Country: US (occurrence: US)
  Receive Date: 20120912
  Receipt Date: 20120912
  Transmission Date: 20130627
  Serious: No
  Sender: FDA-Public Use
  Company Number: US-ASTRAZENECA-2012SE60037

PATIENT
  Age: 59 Year
  Sex: Female

DRUGS (3)
  1. ZESTRIL [Suspect]
     Route: 048
  2. FOSAMAX [Suspect]
     Route: 065
  3. LEVOTHYROXINE [Suspect]
     Route: 065

REACTIONS (3)
  - Tri-iodothyronine decreased [Unknown]
  - Thyroxine decreased [Unknown]
  - Bone density decreased [Unknown]
